FAERS Safety Report 25596675 (Version 6)
Quarter: 2025Q4

REPORT INFORMATION
  Report Type: Spontaneous
  Country: EU (occurrence: EU)
  Receive Date: 20250723
  Receipt Date: 20251210
  Transmission Date: 20260118
  Serious: Yes (Hospitalization, Other)
  Sender: SANDOZ
  Company Number: EU-BRUNO-20200452

PATIENT
  Age: 43 Year
  Sex: Female

DRUGS (16)
  1. CLOMIPRAMINE [Suspect]
     Active Substance: CLOMIPRAMINE
     Indication: Headache
     Dosage: 75 MILLIGRAM, DURING THE LAST  HOSPITALIZATION
     Route: 065
  2. FENTANYL [Suspect]
     Active Substance: FENTANYL
     Indication: Headache
     Dosage: AT THE AGE OF 35 YEARS TO REPLACE  OXYCODONE/PARACETAMOL
     Route: 065
  3. INDOMETACIN MEGLUMINE [Suspect]
     Active Substance: INDOMETACIN MEGLUMINE
     Dosage: 50 MILLIGRAM UP TO BID, DURING THE LAST  HOSPITALIZATION
     Route: 065
  4. INDOMETACIN MEGLUMINE [Suspect]
     Active Substance: INDOMETACIN MEGLUMINE
     Indication: Headache
     Dosage: AT THE AGE OF 20 YEARS
     Route: 065
  5. LANSOPRAZOLE [Suspect]
     Active Substance: LANSOPRAZOLE
     Indication: Product used for unknown indication
     Dosage: 30 MILLIGRAM, DURING THE LAST HOSPITALIZATION
     Route: 065
  6. METAMIZOLE [Suspect]
     Active Substance: METAMIZOLE
     Indication: Headache
     Dosage: AT THE AGE OF 20 YEARS
     Route: 065
  7. METHADONE [Suspect]
     Active Substance: METHADONE HYDROCHLORIDE
     Indication: Headache
     Dosage: 40 MILLIGRAM, UNK
     Route: 065
  8. MORPHINE [Suspect]
     Active Substance: MORPHINE
     Indication: Headache
     Dosage: UNK, UNK
     Route: 065
  9. MORPHINE [Suspect]
     Active Substance: MORPHINE
     Dosage: AT THE AGE OF 33-34 YEARS, AS  REPLACEMENT OF PARACETAMOL/CODEINE
     Route: 065
  10. NOVALGINA [Suspect]
     Active Substance: ACETAMINOPHEN\CAFFEINE
     Indication: Headache
     Dosage: UNK
     Route: 065
  11. ACETAMINOPHEN\OXYCODONE HYDROCHLORIDE [Suspect]
     Active Substance: ACETAMINOPHEN\OXYCODONE HYDROCHLORIDE
     Dosage: UP TO 40 TABLETS DAILY AT THE AGE OF 35  YEARS
     Route: 065
  12. ACETAMINOPHEN\OXYCODONE HYDROCHLORIDE [Suspect]
     Active Substance: ACETAMINOPHEN\OXYCODONE HYDROCHLORIDE
     Indication: Headache
     Dosage: AT THE AGE OF 27 YEARS
     Route: 065
  13. ACETAMINOPHEN [Suspect]
     Active Substance: ACETAMINOPHEN
     Indication: Headache
     Dosage: 1 GRAM UP TO 3 TABLET DAILY PRN, DURING  THE LAST HOSPITALIZATION
     Route: 065
  14. ACETAMINOPHEN\CODEINE PHOSPHATE [Suspect]
     Active Substance: ACETAMINOPHEN\CODEINE PHOSPHATE
     Dosage: UP TO 20 TABLETS DAILY AT THE AGE OF 33-34  YEARS
     Route: 065
  15. ACETAMINOPHEN\CODEINE PHOSPHATE [Suspect]
     Active Substance: ACETAMINOPHEN\CODEINE PHOSPHATE
     Indication: Headache
     Dosage: AT THE AGE OF 27 YEARS
     Route: 065
  16. TOPIRAMATE [Suspect]
     Active Substance: TOPIRAMATE
     Indication: Headache
     Dosage: AT THE AGE OF 27 YEARS
     Route: 065

REACTIONS (3)
  - Gastric haemorrhage [Unknown]
  - Gastroduodenal ulcer [Unknown]
  - Drug abuse [Recovered/Resolved]
